FAERS Safety Report 11717347 (Version 1)
Quarter: 2015Q4

REPORT INFORMATION
  Report Type: Spontaneous
  Country: US (occurrence: US)
  Receive Date: 20151109
  Receipt Date: 20151109
  Transmission Date: 20160304
  Serious: No
  Sender: FDA-Public Use
  Company Number: US-ASTRAZENECA-2015SF05916

PATIENT
  Sex: Male
  Weight: 61.2 kg

DRUGS (5)
  1. CRESTOR [Suspect]
     Active Substance: ROSUVASTATIN CALCIUM
     Indication: STENT PLACEMENT
     Route: 048
     Dates: start: 2008
  2. PLAVIX [Concomitant]
     Active Substance: CLOPIDOGREL BISULFATE
     Indication: ANTICOAGULANT THERAPY
     Route: 048
     Dates: start: 2008
  3. LOW DOSE APIRIN [Concomitant]
     Indication: STENT PLACEMENT
     Route: 048
     Dates: start: 2008
  4. TENORMIN [Suspect]
     Active Substance: ATENOLOL
     Indication: PALPITATIONS
     Route: 048
  5. TENORMIN [Suspect]
     Active Substance: ATENOLOL
     Indication: HYPERTENSION
     Route: 048

REACTIONS (1)
  - Helicobacter infection [Unknown]
